FAERS Safety Report 5705787-3 (Version None)
Quarter: 2008Q2

REPORT INFORMATION
  Report Type: 
  Country: None (occurrence: None)
  Receive Date: 20080415
  Receipt Date: 20080409
  Transmission Date: 20081010
  Serious: Yes (Hospitalization, Other)
  Sender: FDA-Public Use
  Company Number: BE-TEVA-168487ISR

PATIENT
  Sex: Male

DRUGS (3)
  1. COPAXONE [Suspect]
     Route: 058
  2. LEVOTHYROXINE SODIUM [Concomitant]
     Route: 048
  3. OMEGA-3 FATTY ACIDS [Concomitant]

REACTIONS (1)
  - APLASTIC ANAEMIA [None]
